FAERS Safety Report 4361444-X (Version None)
Quarter: 2004Q2

REPORT INFORMATION
  Report Type: 
  Country: None (occurrence: None)
  Receive Date: 20040521
  Receipt Date: 20030514
  Transmission Date: 20050107
  Serious: No
  Sender: FDA-Public Use
  Company Number: US-GLAXOSMITHKLINE-A0408563A

PATIENT
  Age: 24 Year
  Sex: Male

DRUGS (3)
  1. ZYBAN [Suspect]
     Route: 048
     Dates: start: 20030408
  2. ZANTAC [Concomitant]
  3. PHENERGAN [Concomitant]

REACTIONS (3)
  - NAUSEA [None]
  - PHARMACEUTICAL PRODUCT COMPLAINT [None]
  - VOMITING [None]
